FAERS Safety Report 7623640-5 (Version None)
Quarter: 2011Q3

REPORT INFORMATION
  Report Type: 
  Country: None (occurrence: None)
  Receive Date: 20110720
  Receipt Date: 20110715
  Transmission Date: 20111222
  Serious: Yes (Life-Threatening, Hospitalization)
  Sender: FDA-Public Use
  Company Number: JP-BRACCO-004898

PATIENT
  Age: 74 Year
  Sex: Male
  Weight: 45 kg

DRUGS (2)
  1. PROHANCE [Suspect]
     Indication: NUCLEAR MAGNETIC RESONANCE IMAGING
     Route: 042
     Dates: start: 20110607, end: 20110607
  2. PROHANCE [Suspect]
     Indication: METASTASES TO CENTRAL NERVOUS SYSTEM
     Route: 042
     Dates: start: 20110607, end: 20110607

REACTIONS (2)
  - RESPIRATORY ARREST [None]
  - ANAPHYLACTIC SHOCK [None]
